FAERS Safety Report 9392724 (Version 3)
Quarter: 2013Q3

REPORT INFORMATION
  Report Type: Report from Study
  Country: FR (occurrence: FR)
  Receive Date: 20130710
  Receipt Date: 20130829
  Transmission Date: 20140515
  Serious: Yes (Death, Other)
  Sender: FDA-Public Use
  Company Number: FR-CELGENEUS-056-C4047-11121924

PATIENT
  Age: 52 Year
  Sex: Male
  Weight: 100 kg

DRUGS (25)
  1. CC-4047 [Suspect]
     Indication: PLASMA CELL MYELOMA
     Route: 048
     Dates: start: 20111006, end: 20111022
  2. CC-4047 [Suspect]
     Route: 048
     Dates: start: 20111027, end: 20111030
  3. CC-4047 [Suspect]
     Route: 048
     Dates: end: 20111120
  4. DEXAMETHASONE [Concomitant]
     Indication: PLASMA CELL MYELOMA
     Dosage: 40 MILLIGRAM
     Route: 065
  5. MORPHINE [Concomitant]
     Indication: PAIN
     Route: 041
     Dates: start: 201111
  6. SCOPOLAMINE [Concomitant]
     Indication: PROPHYLAXIS
     Route: 065
     Dates: start: 201111
  7. MIDAZOLAM [Concomitant]
     Indication: ANXIETY
     Dosage: 0.5MG/L
     Route: 041
     Dates: start: 201111
  8. EUPANTOL [Concomitant]
     Indication: PRODUCT USED FOR UNKNOWN INDICATION
     Dosage: 20 MILLIGRAM
     Route: 065
  9. XANAX [Concomitant]
     Indication: PRODUCT USED FOR UNKNOWN INDICATION
     Dosage: .25
     Route: 065
  10. ZELITREX [Concomitant]
     Indication: PRODUCT USED FOR UNKNOWN INDICATION
     Route: 065
  11. BACTRIM FORTE [Concomitant]
     Indication: PRODUCT USED FOR UNKNOWN INDICATION
     Route: 065
  12. LEDERFOLINE [Concomitant]
     Indication: PRODUCT USED FOR UNKNOWN INDICATION
     Route: 065
  13. OXYNORM [Concomitant]
     Indication: PRODUCT USED FOR UNKNOWN INDICATION
     Route: 065
  14. SOPHIDONE [Concomitant]
     Indication: PRODUCT USED FOR UNKNOWN INDICATION
     Dosage: 24 MILLIGRAM
     Route: 065
  15. RIVOTRIL [Concomitant]
     Indication: PRODUCT USED FOR UNKNOWN INDICATION
     Dosage: 5 DROPS
     Route: 065
  16. HYDROCORTISONE [Concomitant]
     Indication: PRODUCT USED FOR UNKNOWN INDICATION
     Dosage: 30 MILLIGRAM
     Route: 065
  17. NEODEX [Concomitant]
     Indication: PRODUCT USED FOR UNKNOWN INDICATION
     Dosage: 40 MILLIGRAM
     Route: 065
  18. DIFFU K [Concomitant]
     Indication: PRODUCT USED FOR UNKNOWN INDICATION
     Route: 065
  19. ABSTRAL [Concomitant]
     Indication: PRODUCT USED FOR UNKNOWN INDICATION
     Dosage: 600 MILLIGRAM
     Route: 065
  20. EPREX [Concomitant]
     Indication: PRODUCT USED FOR UNKNOWN INDICATION
     Route: 065
  21. AREDIA [Concomitant]
     Indication: HYPERCALCAEMIA
     Dosage: 90 MILLIGRAM
     Route: 065
     Dates: start: 20111107
  22. AREDIA [Concomitant]
     Dosage: 60 MILLIGRAM
     Route: 065
     Dates: start: 20111108
  23. PROFENID [Concomitant]
     Indication: ANALGESIC THERAPY
     Dosage: 300 MILLIGRAM
     Route: 041
     Dates: start: 201111
  24. AUGMENTIN [Concomitant]
     Indication: LUNG INFECTION
     Dosage: 1 GRAM
     Route: 041
     Dates: start: 201111
  25. PHYSIOLOGICAL SALINE SOLUTION [Concomitant]
     Indication: DEHYDRATION
     Route: 065

REACTIONS (4)
  - Multi-organ failure [Fatal]
  - Pancytopenia [Not Recovered/Not Resolved]
  - Plasma cell myeloma [Fatal]
  - Pneumonia [Recovered/Resolved]
